FAERS Safety Report 7930921-4 (Version None)
Quarter: 2011Q4

REPORT INFORMATION
  Report Type: 
  Country: None (occurrence: None)
  Receive Date: 20111121
  Receipt Date: 20111118
  Transmission Date: 20120403
  Serious: Yes (Hospitalization)
  Sender: FDA-Public Use
  Company Number: CH-ROCHE-798036

PATIENT
  Age: 78 Year
  Sex: Female

DRUGS (8)
  1. LENALIDOMIDE [Suspect]
     Indication: B-CELL LYMPHOMA
     Dosage: LAST DOSE PRIOR TO SAE: 20 AUGUST 2011 PERMANENTLY DISCONTINUED
     Route: 048
  2. ASPIRIN [Concomitant]
     Route: 048
  3. ENALAPRIL MALEATE [Concomitant]
     Dates: start: 20110904
  4. BENDAMUSTINE [Suspect]
     Indication: B-CELL LYMPHOMA
     Dosage: LAST DOSE PRIOR TO SAE: 17 AUGUST 2011
     Route: 042
  5. MABTHERA [Suspect]
     Indication: B-CELL LYMPHOMA
     Dosage: LAST DOSE PRIOR TO SAE: 16 AUGUST 2011
     Route: 042
  6. DIGOXIN [Concomitant]
     Route: 048
  7. ATORVASTATIN CALCIUM [Concomitant]
     Route: 048
  8. TORSEMIDE [Concomitant]
     Route: 048

REACTIONS (3)
  - TROPONIN INCREASED [None]
  - CARDIAC PACEMAKER INSERTION [None]
  - CHEST PAIN [None]
